FAERS Safety Report 22327404 (Version 1)
Quarter: 2023Q2

REPORT INFORMATION
  Report Type: Spontaneous
  Country: US (occurrence: US)
  Receive Date: 20230516
  Receipt Date: 20230516
  Transmission Date: 20230721
  Serious: No
  Sender: FDA-Public Use
  Company Number: US-RADIUS HEALTH INC.-2022US003436

PATIENT
  Age: 62 Year
  Sex: Female

DRUGS (2)
  1. TYMLOS [Suspect]
     Active Substance: ABALOPARATIDE
     Indication: Osteoporosis
     Dosage: 80 MICROGRAM, QD
     Route: 058
     Dates: start: 20220712
  2. TYMLOS [Suspect]
     Active Substance: ABALOPARATIDE
     Dosage: 40 MICROGRAM, QD
     Route: 058

REACTIONS (12)
  - Pain in jaw [Recovering/Resolving]
  - Feeling abnormal [Recovering/Resolving]
  - Neck pain [Unknown]
  - Musculoskeletal chest pain [Unknown]
  - Injection site discomfort [Recovering/Resolving]
  - Injection site mass [Unknown]
  - Headache [Recovering/Resolving]
  - Dizziness [Recovering/Resolving]
  - Injection site erythema [Recovering/Resolving]
  - Intentional product misuse [Unknown]
  - Injection site pain [Recovering/Resolving]
  - Injection site bruising [Unknown]

NARRATIVE: CASE EVENT DATE: 20220710
